FAERS Safety Report 18033894 (Version 3)
Quarter: 2020Q4

REPORT INFORMATION
  Report Type: Spontaneous
  Country: US (occurrence: US)
  Receive Date: 20200716
  Receipt Date: 20201111
  Transmission Date: 20210113
  Serious: Yes (Other)
  Sender: FDA-Public Use
  Company Number: US-GILEAD-2020-0480349

PATIENT
  Age: 45 Year
  Sex: Male
  Weight: 119.73 kg

DRUGS (34)
  1. FOLIC ACID. [Concomitant]
     Active Substance: FOLIC ACID
  2. MYRBETRIQ [Concomitant]
     Active Substance: MIRABEGRON
  3. RANITIDINE. [Concomitant]
     Active Substance: RANITIDINE
  4. TOLTERODINE TARTRATE. [Concomitant]
     Active Substance: TOLTERODINE TARTRATE
  5. ATORVASTATIN CALCIUM. [Concomitant]
     Active Substance: ATORVASTATIN CALCIUM
  6. ELAVIL [ALLOPURINOL] [Concomitant]
     Active Substance: ALLOPURINOL
  7. FISH OIL [Concomitant]
     Active Substance: FISH OIL
  8. OMEGA 3 [FISH OIL] [Concomitant]
     Active Substance: FISH OIL
  9. TRUVADA [Suspect]
     Active Substance: EMTRICITABINE\TENOFOVIR DISOPROXIL FUMARATE
     Indication: HIV INFECTION
     Dosage: UNK
     Route: 048
     Dates: start: 2014, end: 2016
  10. GENVOYA [Concomitant]
     Active Substance: COBICISTAT\ELVITEGRAVIR\EMTRICITABINE\TENOFOVIR ALAFENAMIDE FUMARATE
  11. AMITRIPTYLINE [Concomitant]
     Active Substance: AMITRIPTYLINE
  12. CYMBALTA [Concomitant]
     Active Substance: DULOXETINE HYDROCHLORIDE
  13. DIFLUCAN [Concomitant]
     Active Substance: FLUCONAZOLE
  14. FENOFIBRATE. [Concomitant]
     Active Substance: FENOFIBRATE
  15. REYATAZ [Concomitant]
     Active Substance: ATAZANAVIR SULFATE
  16. BACLOFEN. [Concomitant]
     Active Substance: BACLOFEN
  17. PROVENTIL [Concomitant]
     Active Substance: ALBUTEROL
  18. TRUVADA [Suspect]
     Active Substance: EMTRICITABINE\TENOFOVIR DISOPROXIL FUMARATE
     Dosage: UNK
     Route: 048
     Dates: start: 20080125, end: 201512
  19. SMZ-TMP DS [Concomitant]
     Active Substance: SULFAMETHOXAZOLE\TRIMETHOPRIM
  20. SPIRIVA RESPIMAT [Concomitant]
     Active Substance: TIOTROPIUM BROMIDE
  21. VITAMIN D2 [Concomitant]
     Active Substance: ERGOCALCIFEROL
  22. NORVIR [Concomitant]
     Active Substance: RITONAVIR
  23. ALPHAGEN [Concomitant]
     Active Substance: BRIMONIDINE TARTRATE
  24. FAMOTIDINE. [Concomitant]
     Active Substance: FAMOTIDINE
  25. STIOLTO RESPIMAT [Concomitant]
     Active Substance: OLODATEROL HYDROCHLORIDE\TIOTROPIUM BROMIDE MONOHYDRATE
  26. ZITHROMAX [Concomitant]
     Active Substance: AZITHROMYCIN DIHYDRATE
  27. PREZISTA [Concomitant]
     Active Substance: DARUNAVIR ETHANOLATE
  28. ATARAX [Concomitant]
     Active Substance: HYDROXYZINE HYDROCHLORIDE
  29. EMTRIVA [Concomitant]
     Active Substance: EMTRICITABINE
  30. TIVICAY [Concomitant]
     Active Substance: DOLUTEGRAVIR SODIUM
  31. FLUCONAZOLE. [Concomitant]
     Active Substance: FLUCONAZOLE
  32. HYDROCHLOROTHIAZIDE. [Concomitant]
     Active Substance: HYDROCHLOROTHIAZIDE
  33. HYDROCODONE/ACETAMINOPHEN [Concomitant]
     Active Substance: ACETAMINOPHEN\HYDROCODONE
  34. LOTREL [LOTEPREDNOL ETABONATE] [Concomitant]
     Active Substance: LOTEPREDNOL ETABONATE

REACTIONS (5)
  - Chronic kidney disease [Not Recovered/Not Resolved]
  - Multiple fractures [Not Recovered/Not Resolved]
  - Renal failure [Not Recovered/Not Resolved]
  - Pain [Unknown]
  - Emotional distress [Unknown]

NARRATIVE: CASE EVENT DATE: 20110815
